FAERS Safety Report 19775736 (Version 1)
Quarter: 2021Q3

REPORT INFORMATION
  Report Type: Spontaneous
  Country: US (occurrence: US)
  Receive Date: 20210902
  Receipt Date: 20210902
  Transmission Date: 20211014
  Serious: Yes (Hospitalization, Other)
  Sender: FDA-Public Use
  Company Number: US-HIKMA PHARMACEUTICALS USA INC.-US-H14001-21-03832

PATIENT
  Age: 50 Year
  Sex: Male

DRUGS (4)
  1. MITOMYCIN. [Suspect]
     Active Substance: MITOMYCIN
     Indication: CHEMOTHERAPY
     Dosage: UNKNOWN
     Route: 065
  2. FLUOROURACIL. [Suspect]
     Active Substance: FLUOROURACIL
     Indication: CHEMOTHERAPY
     Dosage: UNKNOWN
     Route: 065
  3. CARBOPLATIN. [Suspect]
     Active Substance: CARBOPLATIN
     Indication: CHEMOTHERAPY
     Dosage: UNKNOWN
     Route: 065
  4. PACLITAXEL. [Suspect]
     Active Substance: PACLITAXEL
     Indication: CHEMOTHERAPY
     Dosage: UNKNOWN
     Route: 065

REACTIONS (1)
  - Pulmonary veno-occlusive disease [Unknown]
